FAERS Safety Report 24822191 (Version 1)
Quarter: 2025Q1

REPORT INFORMATION
  Report Type: Spontaneous
  Country: US (occurrence: US)
  Receive Date: 20250108
  Receipt Date: 20250108
  Transmission Date: 20250408
  Serious: No
  Sender: THEA PHARMA INC.
  Company Number: US-THEA-2024002361

PATIENT
  Age: 71 Year
  Sex: Female

DRUGS (1)
  1. IYUZEH [Suspect]
     Active Substance: LATANOPROST
     Indication: Product used for unknown indication
     Route: 047
     Dates: start: 20241003, end: 202410

REACTIONS (1)
  - Eye irritation [Unknown]

NARRATIVE: CASE EVENT DATE: 20241001
